FAERS Safety Report 19989864 (Version 1)
Quarter: 2021Q4

REPORT INFORMATION
  Report Type: Report from Study
  Country: US (occurrence: US)
  Receive Date: 20211025
  Receipt Date: 20211025
  Transmission Date: 20220303
  Serious: Yes (Other)
  Sender: FDA-Public Use
  Company Number: US-JNJFOC-20211024055

PATIENT
  Sex: Male

DRUGS (3)
  1. SPRAVATO [Suspect]
     Active Substance: ESKETAMINE
     Indication: Depression
     Dates: start: 20200921, end: 20200921
  2. SPRAVATO [Suspect]
     Active Substance: ESKETAMINE
     Dates: start: 20200925, end: 20210806
  3. SPRAVATO [Suspect]
     Active Substance: ESKETAMINE
     Dates: start: 20210813, end: 20210813

REACTIONS (1)
  - Cardiac operation [Unknown]
